FAERS Safety Report 17771127 (Version 1)
Quarter: 2020Q2

REPORT INFORMATION
  Report Type: Report from Study
  Country: FR (occurrence: FR)
  Receive Date: 20200512
  Receipt Date: 20200512
  Transmission Date: 20200714
  Serious: Yes (Hospitalization, Other)
  Sender: FDA-Public Use
  Company Number: FR-MYLANLABS-2020M1045670

PATIENT
  Age: 72 Year
  Sex: Female

DRUGS (9)
  1. LETROZOLE. [Suspect]
     Active Substance: LETROZOLE
     Indication: BREAST CANCER METASTATIC
     Dosage: 2.5 MG, QD
     Route: 048
     Dates: start: 20180108, end: 20200223
  2. PALBOCICLIB [Suspect]
     Active Substance: PALBOCICLIB
     Indication: BREAST CANCER METASTATIC
     Dosage: 125 MG, CYCLIC
     Route: 048
     Dates: start: 20190108, end: 20200223
  3. LEVOTHYROX [Concomitant]
     Active Substance: LEVOTHYROXINE
     Dosage: 75 UG (SATURDAY AND SUNDAY)
     Route: 065
     Dates: start: 20190117
  4. MEBEVERINE FORTE [Concomitant]
     Indication: BLOOD DISORDER
     Dosage: UNK
     Route: 065
     Dates: start: 2000
  5. XGEVA [Concomitant]
     Active Substance: DENOSUMAB
     Indication: METASTASES TO BONE
     Dosage: 120 MILLIGRAM
     Route: 058
     Dates: start: 20190107
  6. SECTRAL [Concomitant]
     Active Substance: ACEBUTOLOL HYDROCHLORIDE
     Indication: HYPERTENSION
     Dosage: 200 MG, QD
     Route: 065
     Dates: start: 2000
  7. LASILIX                            /00032601/ [Concomitant]
     Active Substance: FUROSEMIDE
     Indication: HYPERTENSION
     Dosage: 10 MG, QD
     Route: 065
     Dates: start: 2000
  8. LEVOTHYROX [Concomitant]
     Active Substance: LEVOTHYROXINE
     Indication: THYROID DISORDER
     Dosage: 50 UG, QD (MONDAY TO FRIDAY)
     Route: 065
     Dates: start: 20190117
  9. CALPEROS D3 [Concomitant]
     Active Substance: CALCIUM CARBONATE\CHOLECALCIFEROL
     Indication: PRODUCT USED FOR UNKNOWN INDICATION
     Dosage: 2 DF, QD
     Route: 065

REACTIONS (8)
  - Phlebitis [Recovered/Resolved]
  - Pain in extremity [Unknown]
  - Chest pain [Unknown]
  - Pulmonary embolism [Recovered/Resolved]
  - Colitis [Unknown]
  - Lymphadenopathy [Unknown]
  - Deep vein thrombosis [Unknown]
  - Thrombophlebitis [Unknown]

NARRATIVE: CASE EVENT DATE: 20200223
